FAERS Safety Report 6022361-2 (Version None)
Quarter: 2008Q4

REPORT INFORMATION
  Report Type: 
  Country: None (occurrence: None)
  Receive Date: 20081230
  Receipt Date: 20080714
  Transmission Date: 20090506
  Serious: No
  Sender: FDA-Public Use
  Company Number: US-KINGPHARMUSA00001-K200800823

PATIENT
  Age: 58 Year
  Sex: Female
  Weight: 72.5 kg

DRUGS (2)
  1. INTAL [Suspect]
  2. CLONAZEPAM [Concomitant]

REACTIONS (1)
  - MALAISE [None]
